FAERS Safety Report 16643993 (Version 1)
Quarter: 2019Q3

REPORT INFORMATION
  Report Type: Other
  Country: CN (occurrence: CN)
  Receive Date: 20190729
  Receipt Date: 20190729
  Transmission Date: 20191004
  Serious: Yes (Life-Threatening, Hospitalization, Other)
  Sender: FDA-Public Use
  Company Number: CN-ASTELLAS-2019US030407

PATIENT
  Age: 80 Year
  Sex: Male
  Weight: 59.4 kg

DRUGS (3)
  1. ERLOTINIB [Suspect]
     Active Substance: ERLOTINIB
     Indication: PANCREATIC CARCINOMA
     Route: 048
     Dates: start: 20190531, end: 20190605
  2. ERLOTINIB [Suspect]
     Active Substance: ERLOTINIB
     Indication: OFF LABEL USE
  3. ERLOTINIB [Suspect]
     Active Substance: ERLOTINIB
     Indication: METASTASIS

REACTIONS (10)
  - Dysarthria [Recovering/Resolving]
  - Fatigue [Recovering/Resolving]
  - Dyspnoea [Recovering/Resolving]
  - Off label use [Unknown]
  - Myocardial ischaemia [Recovering/Resolving]
  - Decreased appetite [Recovering/Resolving]
  - Chest discomfort [Recovering/Resolving]
  - Intentional product use issue [Unknown]
  - Cerebrovascular accident [Recovering/Resolving]
  - Acute interstitial pneumonitis [Recovering/Resolving]

NARRATIVE: CASE EVENT DATE: 20190604
